FAERS Safety Report 18521291 (Version 1)
Quarter: 2020Q4

REPORT INFORMATION
  Report Type: Other
  Country: US (occurrence: US)
  Receive Date: 20201119
  Receipt Date: 20201119
  Transmission Date: 20210114
  Serious: Yes (Hospitalization, Other)
  Sender: FDA-Public Use
  Company Number: US-ROCHE-2600880

PATIENT
  Age: 61 Year
  Sex: Female
  Weight: 67.19 kg

DRUGS (11)
  1. ZETIA [Concomitant]
     Active Substance: EZETIMIBE
     Route: 048
     Dates: start: 20201012
  2. OCREVUS [Suspect]
     Active Substance: OCRELIZUMAB
     Route: 042
     Dates: start: 20201008
  3. VALCYTE [Suspect]
     Active Substance: VALGANCICLOVIR HYDROCHLORIDE
     Indication: DEPRESSION
     Dosage: TWO TABLETS TWO TIMES A DAY
     Route: 048
  4. VITAMIN C [Concomitant]
     Active Substance: ASCORBIC ACID
     Route: 048
  5. VASCEPA [Concomitant]
     Active Substance: ICOSAPENT ETHYL
     Indication: BLOOD CHOLESTEROL
     Dosage: 2 CAPSULES TWICE DAILY
     Route: 048
  6. LEXAPRO [Concomitant]
     Active Substance: ESCITALOPRAM OXALATE
     Indication: DEPRESSION
     Route: 048
  7. KEPPRA [Concomitant]
     Active Substance: LEVETIRACETAM
     Indication: DEPRESSION
     Route: 048
  8. VALTREX [Concomitant]
     Active Substance: VALACYCLOVIR HYDROCHLORIDE
     Indication: HERPES VIRUS INFECTION
     Route: 048
     Dates: start: 1983
  9. VALCYTE [Suspect]
     Active Substance: VALGANCICLOVIR HYDROCHLORIDE
     Indication: ENCEPHALITIS
  10. VITAMIN D3 [Concomitant]
     Active Substance: CHOLECALCIFEROL
     Indication: VITAMIN D DEFICIENCY
  11. OCREVUS [Suspect]
     Active Substance: OCRELIZUMAB
     Indication: RELAPSING MULTIPLE SCLEROSIS
     Route: 065
     Dates: start: 20180417

REACTIONS (17)
  - Loss of consciousness [Unknown]
  - Vomiting [Unknown]
  - Seizure [Unknown]
  - Feeling hot [Recovered/Resolved]
  - Pain [Unknown]
  - Flushing [Unknown]
  - Shoulder operation [Unknown]
  - Aggression [Unknown]
  - Off label use [Unknown]
  - Hyperhidrosis [Unknown]
  - Human herpesvirus 6 infection [Unknown]
  - Language disorder [Unknown]
  - Encephalitis [Unknown]
  - Erythema [Recovered/Resolved]
  - Cerebral disorder [Unknown]
  - Glossodynia [Unknown]
  - Magnetic resonance imaging abnormal [Unknown]

NARRATIVE: CASE EVENT DATE: 20200416
